FAERS Safety Report 6297463-6 (Version None)
Quarter: 2009Q3

REPORT INFORMATION
  Report Type: 
  Country: None (occurrence: None)
  Receive Date: 20090805
  Receipt Date: 20090724
  Transmission Date: 20100115
  Serious: Yes (Death)
  Sender: FDA-Public Use
  Company Number: JP-BAYER-200912392BYL

PATIENT
  Age: 75 Year
  Sex: Female
  Weight: 46 kg

DRUGS (5)
  1. NEXAVAR [Suspect]
     Indication: RENAL CELL CARCINOMA STAGE IV
     Dosage: TOTAL DAILY DOSE: 400 MG  UNIT DOSE: 200 MG
     Route: 048
     Dates: start: 20090511, end: 20090612
  2. OXYCONTIN [Suspect]
     Indication: DRUG USE FOR UNKNOWN INDICATION
     Route: 048
     Dates: start: 20090513, end: 20090612
  3. MERISLON [Concomitant]
     Route: 048
     Dates: start: 20060101, end: 20090612
  4. LENDORMIN D [Concomitant]
     Route: 048
     Dates: start: 20060101, end: 20090612
  5. SEFTAC [Concomitant]
     Route: 048
     Dates: start: 20090513, end: 20090612

REACTIONS (6)
  - BLOOD AMYLASE INCREASED [None]
  - CARDIO-RESPIRATORY ARREST [None]
  - GALLBLADDER ENLARGEMENT [None]
  - LIPASE INCREASED [None]
  - NAUSEA [None]
  - VOMITING [None]
